FAERS Safety Report 15946846 (Version 2)
Quarter: 2019Q1

REPORT INFORMATION
  Report Type: Spontaneous
  Country: US (occurrence: US)
  Receive Date: 20190211
  Receipt Date: 20190325
  Transmission Date: 20190417
  Serious: No
  Sender: FDA-Public Use
  Company Number: US-PFIZER INC-2019048548

PATIENT
  Age: 82 Year
  Sex: Female
  Weight: 65.77 kg

DRUGS (2)
  1. PREMARIN [Suspect]
     Active Substance: ESTROGENS, CONJUGATED
     Indication: VULVOVAGINAL BURNING SENSATION
     Dosage: UNK, 1X/DAY  (1/4 APPLICATOR OF CREAM IN THE VAGINA ONCE A DAY AT NIGHT)
     Route: 067
     Dates: start: 20190118, end: 20190125
  2. PREMARIN [Suspect]
     Active Substance: ESTROGENS, CONJUGATED
     Indication: VULVOVAGINAL DISCOMFORT
     Dosage: UNK UNK, 1X/DAY

REACTIONS (2)
  - Product use in unapproved indication [Unknown]
  - Breast tenderness [Recovering/Resolving]

NARRATIVE: CASE EVENT DATE: 20190118
